FAERS Safety Report 6019584-5 (Version None)
Quarter: 2008Q4

REPORT INFORMATION
  Report Type: 
  Country: None (occurrence: None)
  Receive Date: 20081224
  Receipt Date: 20081210
  Transmission Date: 20090506
  Serious: Yes (Hospitalization)
  Sender: FDA-Public Use
  Company Number: JP-GENENTECH-274127

PATIENT
  Sex: Female

DRUGS (4)
  1. AVASTIN [Suspect]
     Indication: COLON CANCER
     Dosage: UNK
     Route: 041
     Dates: end: 20081126
  2. OXALIPLATIN [Concomitant]
     Indication: COLON CANCER
  3. FLUOROURACIL [Concomitant]
     Indication: COLON CANCER
  4. LEUCOVORIN CALCIUM [Concomitant]
     Indication: COLON CANCER

REACTIONS (1)
  - PERITONITIS [None]
